FAERS Safety Report 16779734 (Version 1)
Quarter: 2019Q3

REPORT INFORMATION
  Report Type: Spontaneous
  Country: DE (occurrence: DE)
  Receive Date: 20190906
  Receipt Date: 20190906
  Transmission Date: 20191005
  Serious: Yes (Life-Threatening, Other)
  Sender: FDA-Public Use
  Company Number: DE-NXDC-GLE-0038-2019

PATIENT
  Age: 59 Year
  Sex: Male

DRUGS (1)
  1. 5-ALA (AMINOLEVULINIC ACID) [Suspect]
     Active Substance: AMINOLEVULINIC ACID
     Indication: GLIOBLASTOMA

REACTIONS (3)
  - Embolism venous [Recovering/Resolving]
  - Cardiac arrest [Recovered/Resolved]
  - Extradural haematoma [Recovered/Resolved]
